FAERS Safety Report 4463676-9 (Version None)
Quarter: 2004Q3

REPORT INFORMATION
  Report Type: 
  Country: None (occurrence: None)
  Receive Date: 20040929
  Receipt Date: 20040922
  Transmission Date: 20050211
  Serious: Yes (Hospitalization)
  Sender: FDA-Public Use
  Company Number: 2004CG01892

PATIENT
  Age: 57 Year
  Sex: Male

DRUGS (4)
  1. MOPRAL [Suspect]
     Dosage: 20 MG DAILY PO
     Route: 048
     Dates: start: 20030910, end: 20031013
  2. DEPAKENE [Suspect]
     Dosage: 1 G DAILY PO
     Route: 048
     Dates: start: 20030910, end: 20031020
  3. TRAMADOL HCL [Suspect]
     Dosage: 1 DF DAILY PO
     Route: 048
     Dates: start: 20031007, end: 20031007
  4. SOLUPRED [Suspect]
     Dosage: 60 MG DAILY PO
     Route: 048
     Dates: start: 20030918, end: 20031023

REACTIONS (6)
  - BLOOD AMYLASE INCREASED [None]
  - HAEMOGLOBIN DECREASED [None]
  - HEPATITIS A [None]
  - PROTHROMBIN LEVEL DECREASED [None]
  - TOXIC EPIDERMAL NECROLYSIS [None]
  - TOXIC SKIN ERUPTION [None]
